FAERS Safety Report 4902876-8 (Version None)
Quarter: 2006Q1

REPORT INFORMATION
  Report Type: 
  Country: None (occurrence: None)
  Receive Date: 20060207
  Receipt Date: 20060127
  Transmission Date: 20060701
  Serious: Yes (Hospitalization)
  Sender: FDA-Public Use
  Company Number: US-BOEHRINGER INGELHEIM PHARMACEUTICALS, INC.-2006-BP-01079BP

PATIENT
  Age: 64 Year
  Sex: Female

DRUGS (4)
  1. MOBIC [Suspect]
     Indication: RHEUMATOID ARTHRITIS
     Route: 048
     Dates: start: 20051201, end: 20060101
  2. EFFEXOR [Concomitant]
  3. ATENOLOL [Concomitant]
  4. HYDROCODONE BITARTRATE [Concomitant]

REACTIONS (3)
  - ASTHENIA [None]
  - PARAESTHESIA [None]
  - VITAMIN B12 DEFICIENCY [None]
